FAERS Safety Report 9448542 (Version 2)
Quarter: 2013Q3

REPORT INFORMATION
  Report Type: Spontaneous
  Country: FR (occurrence: FR)
  Receive Date: 20130808
  Receipt Date: 20130812
  Transmission Date: 20140515
  Serious: Yes (Hospitalization, Other)
  Sender: FDA-Public Use
  Company Number: FR-ABBOTT-13P-056-1128516-00

PATIENT
  Age: 46 Year
  Sex: Male

DRUGS (8)
  1. NORVIR [Suspect]
     Indication: HIV INFECTION
     Dates: start: 20130613
  2. INTELENCE [Suspect]
     Indication: HIV INFECTION
     Route: 048
     Dates: start: 20130613
  3. ISENTRESS [Suspect]
     Indication: HIV INFECTION
     Route: 048
     Dates: start: 20130613
  4. PREZISTA [Suspect]
     Indication: HIV INFECTION
     Route: 048
     Dates: start: 20130613
  5. PENTACARINAT [Suspect]
     Indication: ANTIFUNGAL PROPHYLAXIS
     Dates: start: 20130618
  6. PROZAC [Suspect]
     Indication: DEPRESSION
     Route: 048
     Dates: start: 201306, end: 20130710
  7. PROZAC [Suspect]
     Dosage: DOSAGE DECREASED
     Dates: start: 20130710
  8. BACTRIM [Concomitant]
     Indication: PRODUCT USED FOR UNKNOWN INDICATION

REACTIONS (4)
  - Suicide attempt [Unknown]
  - Hepatitis [Not Recovered/Not Resolved]
  - Hepatomegaly [Unknown]
  - Hepatic steatosis [Unknown]
